FAERS Safety Report 11529047 (Version 1)
Quarter: 2015Q3

REPORT INFORMATION
  Report Type: Spontaneous
  Country: US (occurrence: None)
  Receive Date: 20150918
  Receipt Date: 20150918
  Transmission Date: 20151125
  Serious: No
  Sender: FDA-Public Use
  Company Number: None

PATIENT
  Age: 73 Year
  Sex: Female

DRUGS (3)
  1. LETROZOLE. [Concomitant]
     Active Substance: LETROZOLE
  2. IBRANCE [Suspect]
     Active Substance: PALBOCICLIB
     Indication: BREAST CANCER
     Route: 048
     Dates: start: 20150414
  3. DRONABINOL. [Concomitant]
     Active Substance: DRONABINOL

REACTIONS (6)
  - Lacrimation disorder [None]
  - Rhinorrhoea [None]
  - Decreased appetite [None]
  - Vomiting [None]
  - Nausea [None]
  - Diarrhoea [None]
